FAERS Safety Report 21927814 (Version 4)
Quarter: 2023Q2

REPORT INFORMATION
  Report Type: Report from Study
  Country: JP (occurrence: JP)
  Receive Date: 20230130
  Receipt Date: 20230413
  Transmission Date: 20230722
  Serious: Yes (Hospitalization, Other)
  Sender: FDA-Public Use
  Company Number: JP-PFIZER INC-2019086432

PATIENT
  Age: 70 Year
  Sex: Male
  Weight: 58.7 kg

DRUGS (10)
  1. LORBRENA [Suspect]
     Active Substance: LORLATINIB
     Indication: Non-small cell lung cancer
     Dosage: 100 MG, 1X/DAY
     Dates: start: 20190219, end: 20190224
  2. LORBRENA [Suspect]
     Active Substance: LORLATINIB
     Dosage: 75 MG, 1X/DAY
     Dates: start: 20190301, end: 20190311
  3. LORBRENA [Suspect]
     Active Substance: LORLATINIB
     Dosage: 50 MG, 1X/DAY
     Dates: start: 20190326, end: 20190405
  4. LORBRENA [Suspect]
     Active Substance: LORLATINIB
     Dosage: 25 MG, 2X/WEEK
     Dates: start: 20190409
  5. RABEPRAZOLE SODIUM [Concomitant]
     Active Substance: RABEPRAZOLE SODIUM
     Indication: Gastritis
     Dosage: 10 MG, 2X/DAY (AFTER BREAKFAST AND SUPPER)
     Route: 048
     Dates: start: 201405
  6. URSODIOL [Concomitant]
     Active Substance: URSODIOL
     Indication: Liver disorder
     Dosage: 100 MG, 3X/DAY (AFTER EACH MEAL)
     Route: 048
     Dates: start: 201806
  7. POLAPREZINC [Concomitant]
     Active Substance: POLAPREZINC
     Indication: Zinc deficiency
     Dosage: 75 MG, 2X/DAY (AFTER BREAKFAST AND SUPPER)
     Route: 048
     Dates: start: 201805
  8. CALCIUM ASPARTATE [Concomitant]
     Active Substance: CALCIUM ASPARTATE
     Indication: Hypocalcaemia
     Dosage: 200 MG, 2X/DAY (AFTER BREAKFAST AND SUPPER)
     Route: 048
     Dates: start: 201406
  9. CALCIUM CARBONATE\CHOLECALCIFEROL\MAGNESIUM CARBONATE [Concomitant]
     Active Substance: CALCIUM CARBONATE\CHOLECALCIFEROL\MAGNESIUM CARBONATE
     Indication: Hypocalcaemia
     Dosage: 2 DF, 1X/DAY (AFTER BREAKFAST)
     Route: 048
     Dates: start: 201405
  10. CALONAL [Concomitant]
     Active Substance: ACETAMINOPHEN
     Indication: Pain
     Dosage: 500 MG, AS NEEDED

REACTIONS (4)
  - Delirium [Recovered/Resolved]
  - Visual impairment [Recovering/Resolving]
  - Hallucination, visual [Recovering/Resolving]
  - Disorientation [Recovering/Resolving]

NARRATIVE: CASE EVENT DATE: 20190224
